FAERS Safety Report 6844234-5 (Version None)
Quarter: 2010Q3

REPORT INFORMATION
  Report Type: 
  Country: None (occurrence: None)
  Receive Date: 20100714
  Receipt Date: 20100714
  Transmission Date: 20110219
  Serious: Yes (Hospitalization)
  Sender: FDA-Public Use
  Company Number: None

PATIENT
  Age: 72 Year
  Sex: Male
  Weight: 70.3 kg

DRUGS (2)
  1. ASPIRIN [Suspect]
     Indication: CARDIOVASCULAR EVENT PROPHYLAXIS
     Dosage: 81 MG EVERY DAY PO
     Route: 048
     Dates: start: 20100407, end: 20100413
  2. ASPIRIN [Suspect]
     Indication: VASCULAR OPERATION
     Dosage: 81 MG EVERY DAY PO
     Route: 048
     Dates: start: 20100407, end: 20100413

REACTIONS (7)
  - ANGINA PECTORIS [None]
  - CHEST PAIN [None]
  - CONDITION AGGRAVATED [None]
  - GASTRIC HAEMORRHAGE [None]
  - GASTROINTESTINAL HAEMORRHAGE [None]
  - MELAENA [None]
  - PROCTALGIA [None]
